FAERS Safety Report 10581192 (Version 1)
Quarter: 2014Q4

REPORT INFORMATION
  Report Type: Spontaneous
  Country: US (occurrence: None)
  Receive Date: 20141110
  Receipt Date: 20141110
  Transmission Date: 20150529
  Serious: Yes (Hospitalization, Other)
  Sender: FDA-Public Use
  Company Number: 2014OME00002

PATIENT
  Age: 59 Year
  Sex: Female

DRUGS (6)
  1. DEXTROMETHORPHAN (DEXTROMETHORPHAN) [Concomitant]
     Active Substance: DEXTROMETHORPHAN
  2. PSEUDOEPHEDRINE (PSEUDOEPHEDRINE) [Concomitant]
     Active Substance: PSEUDOEPHEDRINE
  3. PHENYLEPHRINE [Suspect]
     Active Substance: PHENYLEPHRINE\PHENYLEPHRINE HYDROCHLORIDE
     Indication: SINUS HEADACHE
     Route: 048
  4. CHLORPHENIRAMINE (CHLORPHENIRAMINE) [Concomitant]
     Active Substance: CHLORPHENIRAMINE
  5. ACETAMINOPHEN (ACETAMINOPHEN) [Concomitant]
     Active Substance: ACETAMINOPHEN
  6. PHENYLEPHRINE [Suspect]
     Active Substance: PHENYLEPHRINE\PHENYLEPHRINE HYDROCHLORIDE
     Indication: SINUSITIS
     Route: 048

REACTIONS (8)
  - Aphasia [None]
  - Urinary incontinence [None]
  - Apraxia [None]
  - Ataxia [None]
  - Hemiparesis [None]
  - Faecal incontinence [None]
  - Cerebral haemorrhage [None]
  - Reversible cerebral vasoconstriction syndrome [None]
